FAERS Safety Report 13377913 (Version 3)
Quarter: 2017Q3

REPORT INFORMATION
  Report Type: Report from Study
  Country: FR (occurrence: FR)
  Receive Date: 20170328
  Receipt Date: 20170718
  Transmission Date: 20171127
  Serious: Yes (Other)
  Sender: FDA-Public Use
  Company Number: FR-REGENERON PHARMACEUTICALS, INC.-2017-13553

PATIENT

DRUGS (22)
  1. EYLEA [Suspect]
     Active Substance: AFLIBERCEPT
     Dosage: RIGHT EYE, ONCE
     Route: 031
     Dates: start: 20140925, end: 20140925
  2. EYLEA [Suspect]
     Active Substance: AFLIBERCEPT
     Dosage: LEFT EYE, ONCE
     Route: 031
     Dates: start: 20150430, end: 20150430
  3. EYLEA [Suspect]
     Active Substance: AFLIBERCEPT
     Dosage: LEFT EYE, ONCE
     Route: 031
     Dates: start: 20140718, end: 20140718
  4. TOBREX [Concomitant]
     Active Substance: TOBRAMYCIN
     Dosage: UNK
     Dates: start: 20140718, end: 20140718
  5. TOBREX [Concomitant]
     Active Substance: TOBRAMYCIN
     Dosage: UNK
     Dates: start: 20141107, end: 20141107
  6. EYLEA [Suspect]
     Active Substance: AFLIBERCEPT
     Indication: NEOVASCULAR AGE-RELATED MACULAR DEGENERATION
     Dosage: LEFT EYE, ONCE
     Route: 031
     Dates: start: 20140618, end: 20140618
  7. EYLEA [Suspect]
     Active Substance: AFLIBERCEPT
     Dosage: RIGHT EYE, ONCE
     Route: 031
     Dates: start: 20140626, end: 20140626
  8. TOBREX [Concomitant]
     Active Substance: TOBRAMYCIN
     Dosage: UNK
     Dates: start: 20140626, end: 20140626
  9. TOBREX [Concomitant]
     Active Substance: TOBRAMYCIN
     Dosage: UNK
     Dates: start: 20140814, end: 20140814
  10. TOBREX [Concomitant]
     Active Substance: TOBRAMYCIN
     Dosage: UNK
     Dates: start: 20140925, end: 20140925
  11. TOBREX [Concomitant]
     Active Substance: TOBRAMYCIN
     Dosage: UNK
     Dates: start: 20150205, end: 20150205
  12. EYLEA [Suspect]
     Active Substance: AFLIBERCEPT
     Dosage: LEFT EYE, ONCE
     Route: 031
     Dates: start: 20150205, end: 20150205
  13. EYLEA [Suspect]
     Active Substance: AFLIBERCEPT
     Dosage: LEFT AND RIGHT EYES, ONCE
     Route: 031
     Dates: start: 20160513, end: 20160513
  14. EYLEA [Suspect]
     Active Substance: AFLIBERCEPT
     Dosage: RIGHT EYE, ONCE
     Route: 031
     Dates: start: 20160811, end: 20160811
  15. LEVOTHYROX [Concomitant]
     Active Substance: LEVOTHYROXINE
     Indication: PRODUCT USED FOR UNKNOWN INDICATION
  16. EYLEA [Suspect]
     Active Substance: AFLIBERCEPT
     Dosage: LEFT EYE, ONCE
     Route: 031
     Dates: start: 20151105, end: 20151105
  17. TOBREX [Concomitant]
     Active Substance: TOBRAMYCIN
     Indication: PROPHYLAXIS
     Dosage: UNK
     Dates: start: 20140618, end: 20140618
  18. EYLEA [Suspect]
     Active Substance: AFLIBERCEPT
     Dosage: LEFT EYE, ONCE
     Route: 031
     Dates: start: 20141107, end: 20141107
  19. EYLEA [Suspect]
     Active Substance: AFLIBERCEPT
     Dosage: LEFT EYE, ONCE
     Route: 031
     Dates: start: 20150814, end: 20150814
  20. EYLEA [Suspect]
     Active Substance: AFLIBERCEPT
     Dosage: LEFT AND RIGHT EYES, ONCE
     Route: 031
     Dates: start: 20160114, end: 20160114
  21. TETRACAINE. [Concomitant]
     Active Substance: TETRACAINE
     Indication: LOCAL ANAESTHESIA
     Dosage: PRN, WITH EYLEA INJECTIONS
     Dates: start: 20140618, end: 20150811
  22. EYLEA [Suspect]
     Active Substance: AFLIBERCEPT
     Dosage: LEFT EYE, ONCE
     Route: 031
     Dates: start: 20140814, end: 20140814

REACTIONS (2)
  - Squamous cell carcinoma of skin [Unknown]
  - Metastases to lymph nodes [Unknown]

NARRATIVE: CASE EVENT DATE: 201702
